FAERS Safety Report 8762180 (Version 1)
Quarter: 2012Q4

REPORT INFORMATION
  Report Type: 
  Country: DE (occurrence: DE)
  Receive Date: 20120830
  Receipt Date: 20120830
  Transmission Date: 20130627
  Serious: Yes (Other)
  Sender: FDA-Public Use
  Company Number: DE-TEVA-354523GER

PATIENT
  Age: 0 Year
  Sex: Male

DRUGS (10)
  1. BACLOFEN [Suspect]
     Route: 064
  2. MST [Suspect]
  3. QUENSYL [Concomitant]
     Route: 064
  4. PREDNISOLONE [Concomitant]
     Route: 064
  5. L-THYROXIN [Concomitant]
     Route: 064
  6. ASS 100 [Concomitant]
     Route: 064
  7. NEXIUM [Concomitant]
     Route: 064
  8. KREON [Concomitant]
     Route: 064
  9. CYTOTEC [Concomitant]
     Route: 064
  10. CLEXANE [Concomitant]
     Route: 064

REACTIONS (3)
  - Drug withdrawal syndrome neonatal [Recovered/Resolved]
  - Caesarean section [None]
  - Maternal drugs affecting foetus [None]
